FAERS Safety Report 16084121 (Version 3)
Quarter: 2021Q4

REPORT INFORMATION
  Report Type: Spontaneous
  Country: US (occurrence: US)
  Receive Date: 20190318
  Receipt Date: 20211213
  Transmission Date: 20220304
  Serious: No
  Sender: FDA-Public Use
  Company Number: US-PFIZER INC-2019008748

PATIENT
  Age: 53 Year
  Sex: Female
  Weight: 64 kg

DRUGS (2)
  1. XELJANZ XR [Suspect]
     Active Substance: TOFACITINIB CITRATE
     Indication: Juvenile idiopathic arthritis
     Dosage: 11 MG, 1X/DAY
     Route: 048
     Dates: start: 201701
  2. XELJANZ XR [Suspect]
     Active Substance: TOFACITINIB CITRATE
     Indication: Rheumatoid arthritis

REACTIONS (4)
  - Rotator cuff syndrome [Unknown]
  - Arthralgia [Unknown]
  - Drug ineffective [Unknown]
  - Hand deformity [Unknown]

NARRATIVE: CASE EVENT DATE: 20170601
